FAERS Safety Report 20020864 (Version 1)
Quarter: 2021Q4

REPORT INFORMATION
  Report Type: Spontaneous
  Country: CA (occurrence: CA)
  Receive Date: 20211101
  Receipt Date: 20211101
  Transmission Date: 20220304
  Serious: Yes (Other)
  Sender: FDA-Public Use
  Company Number: CA-UCBSA-2021050344

PATIENT
  Age: 18 Month
  Sex: Male

DRUGS (9)
  1. LEVETIRACETAM [Suspect]
     Active Substance: LEVETIRACETAM
     Indication: Myoclonic epilepsy
     Dosage: UNKNOWN DOSE
  2. CANNABIDIOL [Concomitant]
     Active Substance: CANNABIDIOL
     Indication: Epilepsy
     Dosage: UNKNOWN DOSE
  3. CLOBAZAM [Concomitant]
     Active Substance: CLOBAZAM
     Indication: Epilepsy
  4. ETHOSUXIMIDE [Concomitant]
     Active Substance: ETHOSUXIMIDE
     Indication: Epilepsy
  5. PREDNISOLONE [Concomitant]
     Active Substance: PREDNISOLONE
     Indication: Epilepsy
     Dosage: 6 MILLIGRAM/KILOGRAM
  6. RUFINAMIDE [Concomitant]
     Active Substance: RUFINAMIDE
     Indication: Epilepsy
     Dosage: UNKNOWN DOSE
  7. TOPIRAMATE [Concomitant]
     Active Substance: TOPIRAMATE
     Indication: Epilepsy
     Route: 048
  8. VALPROIC ACID [Concomitant]
     Active Substance: VALPROIC ACID
     Indication: Epilepsy
  9. VIGABATRIN [Concomitant]
     Active Substance: VIGABATRIN
     Indication: Epilepsy
     Dosage: 180 MILLIGRAM/KILOGRAM

REACTIONS (3)
  - Tonic convulsion [Unknown]
  - Myoclonic epilepsy [Not Recovered/Not Resolved]
  - Petit mal epilepsy [Unknown]
